FAERS Safety Report 8366562-7 (Version None)
Quarter: 2012Q2

REPORT INFORMATION
  Report Type: 
  Country: None (occurrence: None)
  Receive Date: 20120517
  Receipt Date: 20120508
  Transmission Date: 20120825
  Serious: Yes (Other)
  Sender: FDA-Public Use
  Company Number: JP-SANOFI-AVENTIS-2012SA034431

PATIENT
  Age: 65 Year
  Sex: Male

DRUGS (8)
  1. DIOVAN [Suspect]
     Route: 065
  2. MUCOSOLVAN [Concomitant]
  3. RHYTHMY [Concomitant]
  4. URINORM [Concomitant]
  5. ZOLPIDEM [Suspect]
     Route: 048
  6. DORAL [Concomitant]
  7. ESTAZOLAM [Concomitant]
  8. ADALAT [Concomitant]

REACTIONS (2)
  - RHABDOMYOLYSIS [None]
  - BLOOD CREATINE PHOSPHOKINASE INCREASED [None]
